FAERS Safety Report 19128669 (Version 1)
Quarter: 2021Q2

REPORT INFORMATION
  Report Type: Spontaneous
  Country: US (occurrence: US)
  Receive Date: 20210413
  Receipt Date: 20210413
  Transmission Date: 20210717
  Serious: No
  Sender: FDA-Public Use
  Company Number: US-ALLERGAN-2044467US

PATIENT
  Age: 89 Year
  Sex: Female

DRUGS (2)
  1. LUMIGAN [Suspect]
     Active Substance: BIMATOPROST
     Indication: GLAUCOMA
     Dosage: ONE DROP IN LEFT EYE QHS
     Route: 047
     Dates: start: 202010
  2. HCTZ [Concomitant]
     Active Substance: HYDROCHLOROTHIAZIDE
     Indication: FLUID RETENTION
     Dosage: 25MG QOD

REACTIONS (5)
  - Eye irritation [Unknown]
  - Vision blurred [Unknown]
  - Dry eye [Unknown]
  - Foreign body in eye [Unknown]
  - Ocular hyperaemia [Unknown]
